FAERS Safety Report 25917634 (Version 1)
Quarter: 2025Q4

REPORT INFORMATION
  Report Type: Spontaneous
  Country: ID (occurrence: ID)
  Receive Date: 20251014
  Receipt Date: 20251014
  Transmission Date: 20260117
  Serious: Yes (Other)
  Sender: BAXTER
  Company Number: ID-MLMSERVICE-20251003-PI664974-00128-1

PATIENT
  Age: 31 Year
  Sex: Female

DRUGS (5)
  1. DOXORUBICIN [Suspect]
     Active Substance: DOXORUBICIN
     Indication: Non-Hodgkin^s lymphoma
     Dosage: R-CHOP GIVEN EVERY THREE WEEKS, AND HAD UNDERGONE FOUR CYCLES
     Route: 065
     Dates: end: 20250424
  2. CYCLOPHOSPHAMIDE [Suspect]
     Active Substance: CYCLOPHOSPHAMIDE
     Indication: Non-Hodgkin^s lymphoma
     Dosage: R-CHOP GIVEN EVERY THREE WEEKS, AND HAD UNDERGONE FOUR CYCLES
     Route: 065
     Dates: end: 20250424
  3. RITUXIMAB [Suspect]
     Active Substance: RITUXIMAB
     Indication: Non-Hodgkin^s lymphoma
     Dosage: R-CHOP GIVEN EVERY THREE WEEKS, AND HAD UNDERGONE FOUR CYCLES
     Route: 065
     Dates: end: 20250424
  4. VINCRISTINE [Suspect]
     Active Substance: VINCRISTINE
     Indication: Non-Hodgkin^s lymphoma
     Dosage: R-CHOP GIVEN EVERY THREE WEEKS, AND HAD UNDERGONE FOUR CYCLES
     Route: 065
     Dates: end: 20250424
  5. PREDNISONE [Suspect]
     Active Substance: PREDNISONE
     Indication: Non-Hodgkin^s lymphoma
     Dosage: R-CHOP GIVEN EVERY THREE WEEKS, AND HAD UNDERGONE FOUR CYCLES
     Route: 065
     Dates: end: 20250424

REACTIONS (9)
  - Behcet^s syndrome [Unknown]
  - Genital ulceration [Unknown]
  - Constipation [Unknown]
  - Bowel movement irregularity [Unknown]
  - Anal haemorrhage [Unknown]
  - Stomatitis [Unknown]
  - Wound complication [Unknown]
  - Purulent discharge [Unknown]
  - Infection [Unknown]

NARRATIVE: CASE EVENT DATE: 20250101
